FAERS Safety Report 25517650 (Version 2)
Quarter: 2025Q3

REPORT INFORMATION
  Report Type: Spontaneous
  Country: KW (occurrence: KW)
  Receive Date: 20250704
  Receipt Date: 20250810
  Transmission Date: 20251021
  Serious: Yes (Other)
  Sender: ALEXION PHARMACEUTICALS
  Company Number: KW-AstraZeneca-CH-00897046A

PATIENT
  Sex: Male
  Weight: 81 kg

DRUGS (1)
  1. CALQUENCE [Suspect]
     Active Substance: ACALABRUTINIB
     Indication: Chronic lymphocytic leukaemia
     Dates: start: 20221015, end: 20250328

REACTIONS (1)
  - Malignant neoplasm progression [Unknown]
